FAERS Safety Report 15126603 (Version 1)
Quarter: 2018Q3

REPORT INFORMATION
  Report Type: Spontaneous
  Country: CN (occurrence: CN)
  Receive Date: 20180710
  Receipt Date: 20180710
  Transmission Date: 20181010
  Serious: Yes (Hospitalization)
  Sender: FDA-Public Use
  Company Number: CN-ARALEZ PHARMACEUTICALS R+D INC.-2018-ARA-001708

PATIENT
  Age: 46 Year
  Sex: Female

DRUGS (1)
  1. METOPROLOL SUCCINATE. [Suspect]
     Active Substance: METOPROLOL SUCCINATE
     Indication: HYPERTENSION
     Dosage: 47.5 MG, QAM
     Route: 048
     Dates: start: 20180510, end: 20180510

REACTIONS (5)
  - Pruritus [Recovered/Resolved]
  - Skin ulcer [Recovered/Resolved]
  - Herpes virus infection [Recovered/Resolved]
  - Oedema peripheral [Recovered/Resolved]
  - Discharge [Recovered/Resolved]

NARRATIVE: CASE EVENT DATE: 20180510
